FAERS Safety Report 25049253 (Version 1)
Quarter: 2025Q1

REPORT INFORMATION
  Report Type: Spontaneous
  Country: US (occurrence: US)
  Receive Date: 20250307
  Receipt Date: 20250307
  Transmission Date: 20250409
  Serious: No
  Sender: ROCHE
  Company Number: US-ROCHE-10000222934

PATIENT
  Sex: Female
  Weight: 45.35 kg

DRUGS (1)
  1. ALECENSA [Suspect]
     Active Substance: ALECTINIB HYDROCHLORIDE
     Indication: Non-small cell lung cancer
     Dosage: 600 MG BID
     Route: 065
     Dates: start: 202406

REACTIONS (4)
  - Anaemia [Unknown]
  - Red cell distribution width increased [Unknown]
  - Serum ferritin increased [Unknown]
  - Fatigue [Unknown]
